FAERS Safety Report 9748761 (Version 4)
Quarter: 2014Q1

REPORT INFORMATION
  Report Type: Spontaneous
  Country: US (occurrence: US)
  Receive Date: 20131212
  Receipt Date: 20140220
  Transmission Date: 20141002
  Serious: Yes (Hospitalization)
  Sender: FDA-Public Use
  Company Number: US-NOVOPROD-394280

PATIENT
  Age: 66 Year
  Sex: Male
  Weight: 94.33 kg

DRUGS (20)
  1. VICTOZA [Suspect]
     Indication: TYPE 2 DIABETES MELLITUS
     Dosage: 0.6 MG DAILY
     Route: 058
     Dates: start: 20131028, end: 201311
  2. VICTOZA [Suspect]
     Dosage: 1.2 MG DAILY
     Route: 058
     Dates: start: 201311, end: 201311
  3. VICTOZA [Suspect]
     Dosage: 1.8 MG DAILY
     Route: 058
     Dates: start: 201311, end: 20131126
  4. SIMVASTATIN [Suspect]
     Indication: CORONARY ARTERY DISEASE
     Dosage: 80 MG DAILY
     Route: 048
     Dates: end: 20131209
  5. LOPID [Suspect]
     Indication: CORONARY ARTERY DISEASE
     Dosage: 600 MG TWICE DAILY
     Route: 048
     Dates: start: 201206, end: 20131209
  6. INSULIN [Concomitant]
     Indication: TYPE 2 DIABETES MELLITUS
  7. FINASTERIDE [Concomitant]
     Indication: PRODUCT USED FOR UNKNOWN INDICATION
     Dosage: 5 MG, QD
     Route: 048
  8. TERAZOSIN [Concomitant]
     Indication: PRODUCT USED FOR UNKNOWN INDICATION
     Dosage: 2 MG, QHS
     Route: 048
  9. GABAPENTIN [Concomitant]
     Indication: PRODUCT USED FOR UNKNOWN INDICATION
     Dosage: 300 MG, 2 CAPSULES TWICE DAILY
     Route: 048
  10. EFFIENT [Concomitant]
     Indication: PRODUCT USED FOR UNKNOWN INDICATION
     Dosage: 10 MG, QD
     Route: 048
  11. METFORMIN HCL [Concomitant]
     Indication: PRODUCT USED FOR UNKNOWN INDICATION
     Dosage: 1000 MG, BID
     Route: 048
  12. LEVEMIR FLEXPEN [Concomitant]
     Indication: PRODUCT USED FOR UNKNOWN INDICATION
     Dosage: 46 EACH EVENING
     Route: 058
  13. NOVOLOG FLEXPEN [Concomitant]
     Indication: PRODUCT USED FOR UNKNOWN INDICATION
     Dosage: SLIDING SCALE
     Route: 058
  14. TYLENOL ARTHRITIS PAIN [Concomitant]
     Indication: PRODUCT USED FOR UNKNOWN INDICATION
     Dosage: 2 TAB, BID
     Route: 048
  15. VITAMIN C                          /00008001/ [Concomitant]
     Indication: PRODUCT USED FOR UNKNOWN INDICATION
     Dosage: 500 MG, THREE TIMES PER WEEK
  16. CENTRUM SILVER                     /02363801/ [Concomitant]
     Indication: PRODUCT USED FOR UNKNOWN INDICATION
     Dosage: 1 TAB, QD
     Route: 048
  17. MIDRIN                             /00450801/ [Concomitant]
     Indication: HEADACHE
     Dosage: 1 EVERY 6 HOURS AS NEEDED FOR HEADACHE
     Route: 048
  18. NITROLINGUAL [Concomitant]
     Indication: PRODUCT USED FOR UNKNOWN INDICATION
     Dosage: 0.4 MG, AS DIRECTED
  19. ASPIRIN LOW [Concomitant]
     Indication: PRODUCT USED FOR UNKNOWN INDICATION
     Dosage: 81 MG, EVERY MORNING
     Route: 048
  20. LORAZEPAM [Concomitant]
     Indication: PRODUCT USED FOR UNKNOWN INDICATION
     Dosage: 0.5 MG, QD AT BEDTIME AS NEEDED

REACTIONS (1)
  - Rhabdomyolysis [Recovered/Resolved]
